FAERS Safety Report 25689360 (Version 1)
Quarter: 2025Q3

REPORT INFORMATION
  Report Type: Spontaneous
  Country: US (occurrence: US)
  Receive Date: 20250818
  Receipt Date: 20250818
  Transmission Date: 20251020
  Serious: Yes (Death, Hospitalization)
  Sender: MYLAN
  Company Number: US-MYLANLABS-2025M1068784

PATIENT
  Age: 74 Year
  Sex: Male

DRUGS (8)
  1. AMPHOTERICIN B [Suspect]
     Active Substance: AMPHOTERICIN B
     Indication: Histoplasmosis disseminated
  2. AMPHOTERICIN B [Suspect]
     Active Substance: AMPHOTERICIN B
     Route: 065
  3. AMPHOTERICIN B [Suspect]
     Active Substance: AMPHOTERICIN B
     Route: 065
  4. AMPHOTERICIN B [Suspect]
     Active Substance: AMPHOTERICIN B
  5. MICAFUNGIN [Suspect]
     Active Substance: MICAFUNGIN SODIUM
     Indication: Candida infection
  6. MICAFUNGIN [Suspect]
     Active Substance: MICAFUNGIN SODIUM
     Route: 065
  7. MICAFUNGIN [Suspect]
     Active Substance: MICAFUNGIN SODIUM
     Route: 065
  8. MICAFUNGIN [Suspect]
     Active Substance: MICAFUNGIN SODIUM

REACTIONS (1)
  - Drug ineffective [Fatal]
